FAERS Safety Report 7912735-4 (Version None)
Quarter: 2011Q4

REPORT INFORMATION
  Report Type: 
  Country: None (occurrence: None)
  Receive Date: 20111114
  Receipt Date: 20111109
  Transmission Date: 20120403
  Serious: Yes (Other)
  Sender: FDA-Public Use
  Company Number: US-PFIZER INC-2011168442

PATIENT
  Sex: Female

DRUGS (3)
  1. TENORMIN [Suspect]
     Dosage: UNK, 1X/DAY
  2. NORVASC [Suspect]
     Dosage: 2.5 MG, 1X/DAY
  3. VASOTEC [Suspect]
     Dosage: 5 MG, 2X/DAY

REACTIONS (3)
  - FATIGUE [None]
  - MEMORY IMPAIRMENT [None]
  - GLUCOSE TOLERANCE IMPAIRED [None]
